FAERS Safety Report 5852486-3 (Version None)
Quarter: 2008Q3

REPORT INFORMATION
  Report Type: 
  Country: None (occurrence: None)
  Receive Date: 20080819
  Receipt Date: 20080806
  Transmission Date: 20090109
  Serious: Yes (Other)
  Sender: FDA-Public Use
  Company Number: 2008BI016042

PATIENT
  Age: 82 Year
  Sex: Female
  Weight: 56.246 kg

DRUGS (19)
  1. AVONEX [Suspect]
     Indication: MULTIPLE SCLEROSIS
     Dosage: IM; 30 UG; QW; IM
     Route: 030
     Dates: start: 20021101
  2. CELEBREX (CON.) [Concomitant]
  3. TRAMADOL (CON.) [Concomitant]
  4. TYLENOL WITH CODEINE (CON.) [Concomitant]
  5. TRAZADONE (CON.) [Concomitant]
  6. PAXIL (CON.) [Concomitant]
  7. OS-CAL (CON.) [Concomitant]
  8. KLOR CON(CON.) [Concomitant]
  9. SPIRONOLACTONE AND HYDROCHLOROTHIAZIDE (CON.) [Concomitant]
  10. BENZONATATE (CON.) [Concomitant]
  11. DOCUSATE CALCIUM (CON.) [Concomitant]
  12. COMPAZINE (CON.) [Concomitant]
  13. PREMARIN (CON.) [Concomitant]
  14. SYNTHROID (CON.) [Concomitant]
  15. OXYBUTYNIN CHLORIDE (CON.) [Concomitant]
  16. VITAMIN E (CON.) [Concomitant]
  17. NEXIUM (CON.) [Concomitant]
  18. SPIRIVA (CON.) [Concomitant]
  19. OXYGEN (CON.) [Concomitant]

REACTIONS (7)
  - BLOOD CREATININE INCREASED [None]
  - NON-SMALL CELL LUNG CANCER STAGE I [None]
  - OROPHARYNGEAL PAIN [None]
  - SCAB [None]
  - SKIN INFECTION [None]
  - SKIN ULCER [None]
  - WHITE BLOOD CELL COUNT DECREASED [None]
